FAERS Safety Report 7883630-4 (Version None)
Quarter: 2011Q4

REPORT INFORMATION
  Report Type: 
  Country: None (occurrence: None)
  Receive Date: 20111031
  Receipt Date: 20111018
  Transmission Date: 20120403
  Serious: Yes (Life-Threatening, Hospitalization)
  Sender: FDA-Public Use
  Company Number: 2011MA015371

PATIENT
  Age: 74 Year
  Sex: Female

DRUGS (9)
  1. BISOPROLOL [Concomitant]
  2. FERROUS FUMARATE [Concomitant]
  3. LEVOTHYROXINE SODIUM [Concomitant]
  4. ROPINIROLE [Concomitant]
  5. ROSUVASTATIN [Concomitant]
  6. OXYBUTYNIN [Concomitant]
  7. FUROSEMIDE [Concomitant]
  8. NAPROXEN [Suspect]
     Indication: ARTHRALGIA
     Dosage: 500 MG;BID;PO
     Route: 048
     Dates: start: 20110827, end: 20110908
  9. ASPIRIN [Concomitant]

REACTIONS (1)
  - RENAL FAILURE ACUTE [None]
